FAERS Safety Report 17755308 (Version 2)
Quarter: 2020Q2

REPORT INFORMATION
  Report Type: Spontaneous
  Country: US (occurrence: US)
  Receive Date: 20200507
  Receipt Date: 20200508
  Transmission Date: 20200714
  Serious: Yes (Other)
  Sender: FDA-Public Use
  Company Number: US-PFIZER INC-2020182648

PATIENT
  Age: 71 Year
  Sex: Male
  Weight: 66.68 kg

DRUGS (1)
  1. DOFETILIDE. [Suspect]
     Active Substance: DOFETILIDE
     Indication: ARRHYTHMIA
     Dosage: 750 UG, DAILY(250 MCG CAPSULE, 500 MCG IN THE MORNING AND 250 MCG)
     Route: 048

REACTIONS (2)
  - Arrhythmia [Unknown]
  - Drug ineffective [Unknown]
